FAERS Safety Report 10268098 (Version 1)
Quarter: 2014Q2

REPORT INFORMATION
  Report Type: Spontaneous
  Country: US (occurrence: US)
  Receive Date: 20140630
  Receipt Date: 20140630
  Transmission Date: 20141212
  Serious: Yes (Hospitalization)
  Sender: FDA-Public Use
  Company Number: US-PFIZER INC-2014171617

PATIENT
  Age: 80 Year
  Sex: Male

DRUGS (6)
  1. SUTENT [Suspect]
     Indication: RENAL CANCER
     Dosage: UNK, STRENGTH 25 MG
     Dates: start: 20130130
  2. AMLODIPINE BESYLATE [Concomitant]
     Dosage: UNK
  3. TRIAMTERENE AND HYDROCHLOROTHIZIDE [Concomitant]
     Dosage: UNK
  4. MELOXICAM [Concomitant]
     Dosage: UNK
  5. METOPROLOL SUCCINATE ER [Concomitant]
     Dosage: UNK
  6. TERAZOSIN HYDROCHLORIDE [Concomitant]
     Dosage: UNK

REACTIONS (3)
  - Pyrexia [Unknown]
  - Infection [Unknown]
  - Back disorder [Unknown]
